FAERS Safety Report 14829640 (Version 1)
Quarter: 2018Q2

REPORT INFORMATION
  Report Type: Report from Study
  Country: US (occurrence: US)
  Receive Date: 20180430
  Receipt Date: 20180430
  Transmission Date: 20180711
  Serious: No
  Sender: FDA-Public Use
  Company Number: US-ALEXION PHARMACEUTICALS INC.-A201805070

PATIENT
  Sex: Male

DRUGS (1)
  1. SOLIRIS [Suspect]
     Active Substance: ECULIZUMAB
     Indication: PAROXYSMAL NOCTURNAL HAEMOGLOBINURIA
     Dosage: UNK
     Route: 065

REACTIONS (9)
  - Infection [Recovered/Resolved]
  - Monocyte count increased [Unknown]
  - Mean cell haemoglobin concentration increased [Unknown]
  - Platelet count decreased [Unknown]
  - Haemolysis [Recovered/Resolved]
  - Pyrexia [Recovered/Resolved]
  - Mean cell volume increased [Unknown]
  - Viral upper respiratory tract infection [Recovered/Resolved]
  - Red blood cell count decreased [Unknown]

NARRATIVE: CASE EVENT DATE: 2017
